FAERS Safety Report 9119714 (Version 1)
Quarter: 2013Q1

REPORT INFORMATION
  Report Type: Spontaneous
  Country: DK (occurrence: None)
  Receive Date: 20130130
  Receipt Date: 20130130
  Transmission Date: 20140127
  Serious: Yes (Hospitalization)
  Sender: FDA-Public Use
  Company Number: 2013MA000776

PATIENT
  Age: 19 Year
  Sex: Male

DRUGS (2)
  1. FEVERALL [Suspect]
     Dosage: 20 G; 1X
  2. ISOTRETINOIN (ISOTRETINOIN) [Suspect]
     Indication: ACNE
     Route: 048
     Dates: start: 20121209, end: 20121210

REACTIONS (2)
  - Overdose [None]
  - Liver function test abnormal [None]
